FAERS Safety Report 7932867 (Version 2)
Quarter: 2013Q4

REPORT INFORMATION
  Report Type: Spontaneous
  Country: US (occurrence: US)
  Receive Date: 20110506
  Receipt Date: 20131223
  Transmission Date: 20140711
  Serious: Yes (Hospitalization, Other)
  Sender: FDA-Public Use
  Company Number: US-BAYER-2011-037865

PATIENT
  Age: 26 Year
  Sex: Female

DRUGS (7)
  1. YAZ [Suspect]
  2. YASMIN [Suspect]
  3. OCELLA [Suspect]
  4. REGLAN [Concomitant]
     Dosage: 10 MG, HREE TIMES A DAY
     Route: 048
  5. DECONAMINE [Concomitant]
     Dosage: 4MG/60MG, 1 TAB EVERY 12 HOURS
     Route: 048
  6. DECONAMINE [Concomitant]
     Dosage: ONE, TWO TIMES A DAY
  7. CLARITIN [Concomitant]
     Dosage: 10 MG, ONCE DAILY
     Route: 048

REACTIONS (8)
  - Organ failure [None]
  - Cholecystitis chronic [None]
  - Injury [None]
  - Pain [None]
  - General physical health deterioration [None]
  - Anxiety [None]
  - Anhedonia [None]
  - Emotional distress [None]
